FAERS Safety Report 15850392 (Version 1)
Quarter: 2019Q1

REPORT INFORMATION
  Report Type: Spontaneous
  Country: US (occurrence: US)
  Receive Date: 20190121
  Receipt Date: 20190121
  Transmission Date: 20190417
  Serious: No
  Sender: FDA-Public Use
  Company Number: US-PFIZER INC-2019016492

PATIENT
  Age: 7 Year
  Sex: Male

DRUGS (2)
  1. GENOTROPIN MQ [Suspect]
     Active Substance: SOMATROPIN
     Indication: ECTOPIC POSTERIOR PITUITARY GLAND
     Dosage: 0.8 MG, DAILY
  2. GENOTROPIN MQ [Suspect]
     Active Substance: SOMATROPIN
     Indication: HYPOTHYROIDISM

REACTIONS (7)
  - Bone density increased [Unknown]
  - Insulin-like growth factor decreased [Unknown]
  - Thyroxine free increased [Unknown]
  - Product use in unapproved indication [Unknown]
  - Vitamin D deficiency [Unknown]
  - Insulin-like growth factor increased [Unknown]
  - Thyroxine free decreased [Unknown]

NARRATIVE: CASE EVENT DATE: 20171002
